FAERS Safety Report 12894640 (Version 1)
Quarter: 2016Q4

REPORT INFORMATION
  Report Type: Spontaneous
  Country: US (occurrence: US)
  Receive Date: 20161028
  Receipt Date: 20161028
  Transmission Date: 20170207
  Serious: Yes (Other)
  Sender: FDA-Public Use
  Company Number: US-ELI_LILLY_AND_COMPANY-US201607009642

PATIENT
  Age: 60 Year
  Sex: Female

DRUGS (3)
  1. CYMBALTA [Suspect]
     Active Substance: DULOXETINE HYDROCHLORIDE
     Indication: DEPRESSION
     Dosage: 60 MG, QD
     Route: 048
     Dates: start: 2009
  2. CYMBALTA [Suspect]
     Active Substance: DULOXETINE HYDROCHLORIDE
     Indication: FIBROMYALGIA
     Dosage: 30 MG, QD
     Route: 048
  3. CYMBALTA [Suspect]
     Active Substance: DULOXETINE HYDROCHLORIDE
     Dosage: 30 MG, QOD
     Route: 048
     Dates: end: 201503

REACTIONS (18)
  - Decreased appetite [Unknown]
  - Nausea [Unknown]
  - Anxiety [Unknown]
  - Aggression [Unknown]
  - Suicidal ideation [Unknown]
  - Sensory disturbance [Unknown]
  - Abdominal pain upper [Unknown]
  - Crying [Unknown]
  - Insomnia [Recovered/Resolved]
  - Tremor [Unknown]
  - Weight decreased [Unknown]
  - Anger [Unknown]
  - Eye disorder [Unknown]
  - Headache [Unknown]
  - Panic attack [Unknown]
  - Drug withdrawal syndrome [Unknown]
  - Depression [Unknown]
  - Diarrhoea [Unknown]

NARRATIVE: CASE EVENT DATE: 20150422
